FAERS Safety Report 5691888-5 (Version None)
Quarter: 2008Q2

REPORT INFORMATION
  Report Type: 
  Country: None (occurrence: None)
  Receive Date: 20080401
  Receipt Date: 20080401
  Transmission Date: 20081010
  Serious: Yes (Life-Threatening, Hospitalization)
  Sender: FDA-Public Use
  Company Number: None

PATIENT
  Age: 77 Year
  Sex: Male
  Weight: 85 kg

DRUGS (1)
  1. GLYBURIDE [Suspect]
     Indication: DIABETES MELLITUS
     Dosage: 1.25MG BID PO
     Route: 048
     Dates: start: 20060510, end: 20080123

REACTIONS (2)
  - HYPOGLYCAEMIA [None]
  - RENAL FAILURE CHRONIC [None]
